FAERS Safety Report 16766432 (Version 1)
Quarter: 2019Q3

REPORT INFORMATION
  Report Type: Spontaneous
  Country: JP (occurrence: JP)
  Receive Date: 20190903
  Receipt Date: 20190903
  Transmission Date: 20191005
  Serious: Yes (Death, Hospitalization)
  Sender: FDA-Public Use
  Company Number: JP-ROCHE-2328217

PATIENT
  Age: 42 Year
  Sex: Female
  Weight: 48 kg

DRUGS (11)
  1. MIYA-BM [Concomitant]
     Active Substance: CLOSTRIDIUM BUTYRICUM SPORES STRAIN M-55
     Route: 048
     Dates: start: 20190313
  2. HUSCODE [Concomitant]
     Active Substance: CHLORPHENIRAMINE MALEATE\DIHYDROCODEINE PHOSPHATE\METHYLEPHEDRINE HYDROCHLORIDE, DL-
     Dosage: WHEN THE TUSSIS IS AWFUL
     Route: 062
     Dates: start: 20190430
  3. RIZABEN [Concomitant]
     Active Substance: TRANILAST
     Dosage: DOSAGE IS UNCERTAIN.
     Route: 031
     Dates: start: 20190430
  4. TECENTRIQ [Suspect]
     Active Substance: ATEZOLIZUMAB
     Indication: LUNG ADENOCARCINOMA
     Route: 041
     Dates: start: 20190502, end: 20190502
  5. DENOTAS [Concomitant]
     Active Substance: CALCIUM CARBONATE\CHOLECALCIFEROL\MAGNESIUM CARBONATE
     Route: 048
     Dates: start: 20160527
  6. ORADOL [DOMIPHEN BROMIDE] [Concomitant]
     Dosage: LIKE BURS
     Route: 062
  7. HYALEIN [Concomitant]
     Active Substance: HYALURONATE SODIUM
     Dosage: DOSAGE IS UNCERTAIN.
     Route: 031
     Dates: start: 20170802
  8. RANMARK [Concomitant]
     Active Substance: DENOSUMAB
     Route: 058
     Dates: start: 20160527, end: 20190410
  9. DIHYDROCODEINE PHOSPHATE [Concomitant]
     Active Substance: DIHYDROCODEINE PHOSPHATE
     Dosage: WHEN THE TUSSIS IS AWFUL
     Route: 048
     Dates: start: 20190430
  10. ZOLPIDEM TARTRATE. [Concomitant]
     Active Substance: ZOLPIDEM TARTRATE
     Route: 048
     Dates: start: 20160921
  11. RESTAMIN [DIPHENHYDRAMINE] [Concomitant]
     Dosage: DOSAGE IS UNCERTAIN.
     Route: 048
     Dates: start: 20190502, end: 20190502

REACTIONS (4)
  - Interstitial lung disease [Fatal]
  - Lung neoplasm malignant [Fatal]
  - Lymphangiosis carcinomatosa [Fatal]
  - Nausea [Unknown]

NARRATIVE: CASE EVENT DATE: 20190509
